FAERS Safety Report 21609978 (Version 1)
Quarter: 2022Q4

REPORT INFORMATION
  Report Type: Spontaneous
  Country: AU (occurrence: AU)
  Receive Date: 20221117
  Receipt Date: 20221117
  Transmission Date: 20230113
  Serious: Yes (Other)
  Sender: FDA-Public Use
  Company Number: None

PATIENT

DRUGS (2)
  1. IBUPROFEN [Suspect]
     Active Substance: IBUPROFEN
     Indication: Product used for unknown indication
     Route: 065
  2. ACETAMINOPHEN [Suspect]
     Active Substance: ACETAMINOPHEN
     Indication: Product used for unknown indication
     Dosage: 30 G
     Route: 048

REACTIONS (5)
  - Alanine aminotransferase increased [Recovered/Resolved]
  - Hepatotoxicity [Recovered/Resolved]
  - Liver injury [Recovered/Resolved]
  - Overdose [Unknown]
  - Toxicity to various agents [Recovered/Resolved]
